FAERS Safety Report 6611148-5 (Version None)
Quarter: 2010Q1

REPORT INFORMATION
  Report Type: 
  Country: None (occurrence: None)
  Receive Date: 20100302
  Receipt Date: 20100302
  Transmission Date: 20100710
  Serious: Yes (Hospitalization)
  Sender: FDA-Public Use
  Company Number: None

PATIENT
  Age: 91 Year
  Sex: Female
  Weight: 73.2 kg

DRUGS (28)
  1. VALIUM [Suspect]
     Indication: ANXIETY
     Dosage: 5MG BID PRN PO CHRONIC
     Route: 048
  2. NEURONTIN [Suspect]
     Indication: PAIN
     Dosage: 400MG TID PO
     Route: 048
  3. REMERON [Suspect]
     Indication: PAIN
     Dosage: 15MG QHS PO CHRONIC
     Route: 048
  4. ALBUTEROL [Concomitant]
  5. GABAPENTIN [Concomitant]
  6. LASIX [Concomitant]
  7. DIAZEPAM [Concomitant]
  8. MYLARSA [Concomitant]
  9. NITROGLYCERIN [Concomitant]
  10. NATURE TEARS [Concomitant]
  11. TYLENOL-500 [Concomitant]
  12. INSULIN LISPOR [Concomitant]
  13. KLONOPIN [Concomitant]
  14. LANTUS [Concomitant]
  15. DARVOCET [Concomitant]
  16. METOPROLOL TARTRATE [Concomitant]
  17. POTASSIUM CHLORIDE [Concomitant]
  18. BISACODYL [Concomitant]
  19. REMERON [Concomitant]
  20. ASPIRIN [Concomitant]
  21. PROTINIC [Concomitant]
  22. PREDNISONE [Concomitant]
  23. SIMVASTATIN [Concomitant]
  24. ADVAIR DISKUS 100/50 [Concomitant]
  25. NORVASC [Concomitant]
  26. M.V.I. [Concomitant]
  27. LISINOPRIL [Concomitant]
  28. FENTANYL [Concomitant]

REACTIONS (4)
  - MENTAL STATUS CHANGES [None]
  - PNEUMONIA ASPIRATION [None]
  - RENAL FAILURE [None]
  - UNRESPONSIVE TO STIMULI [None]
